FAERS Safety Report 16465495 (Version 2)
Quarter: 2019Q3

REPORT INFORMATION
  Report Type: Spontaneous
  Country: PL (occurrence: PL)
  Receive Date: 20190621
  Receipt Date: 20190718
  Transmission Date: 20191004
  Serious: Yes (Other)
  Sender: FDA-Public Use
  Company Number: PL-ASTRAZENECA-2019SE70631

PATIENT
  Age: 54 Year
  Sex: Female

DRUGS (5)
  1. DASABUVIR [Interacting]
     Active Substance: DASABUVIR
     Indication: CHRONIC HEPATITIS C
     Route: 065
  2. BUDESONIDE. [Interacting]
     Active Substance: BUDESONIDE
     Indication: AUTOIMMUNE HEPATITIS
     Route: 048
  3. BUDESONIDE. [Suspect]
     Active Substance: BUDESONIDE
     Indication: AUTOIMMUNE HEPATITIS
     Dosage: 1 X 3 MILLIGRAM IN 2 DAY
     Route: 048
     Dates: start: 2011
  4. OMBITASVIR;PARITAPREVIR;RITONAVIR [Interacting]
     Active Substance: OMBITASVIR\PARITAPREVIR\RITONAVIR
     Indication: CHRONIC HEPATITIS C
     Route: 065
  5. AZATHIOPRINE. [Concomitant]
     Active Substance: AZATHIOPRINE
     Indication: CHRONIC HEPATITIS C
     Route: 065
     Dates: start: 2011

REACTIONS (3)
  - Drug interaction [Recovered/Resolved]
  - Off label use [Recovered/Resolved]
  - Cushing^s syndrome [Recovered/Resolved]
